FAERS Safety Report 6438569-8 (Version None)
Quarter: 2009Q4

REPORT INFORMATION
  Report Type: 
  Country: None (occurrence: None)
  Receive Date: 20091112
  Receipt Date: 20091007
  Transmission Date: 20100525
  Serious: No
  Sender: FDA-Public Use
  Company Number: US-ALLERGAN-0913929US

PATIENT
  Sex: Male

DRUGS (1)
  1. COMBIGAN [Suspect]
     Indication: GLAUCOMA
     Dosage: UNK
     Route: 047
     Dates: start: 20090727, end: 20090830

REACTIONS (3)
  - EYE IRRITATION [None]
  - EYELID IRRITATION [None]
  - VISUAL IMPAIRMENT [None]
